FAERS Safety Report 6789255-6 (Version None)
Quarter: 2010Q2

REPORT INFORMATION
  Report Type: 
  Country: None (occurrence: None)
  Receive Date: 20100623
  Receipt Date: 20090514
  Transmission Date: 20101027
  Serious: Yes (Other)
  Sender: FDA-Public Use
  Company Number: US-PFIZER INC-2008053305

PATIENT
  Sex: Female

DRUGS (12)
  1. PROVERA [Suspect]
     Indication: HORMONE REPLACEMENT THERAPY
     Dosage: 10 MG,  FOR 15 DAYS
     Dates: start: 19891213
  2. PROVERA [Suspect]
     Dosage: 10 MG, FOR 10 DAYS
     Dates: start: 19920318
  3. PROVERA [Suspect]
     Dosage: 2.5 MG, UNK
     Route: 048
     Dates: start: 19920828, end: 19970402
  4. MEDROXYPROGESTERONE ACETATE [Suspect]
     Indication: HORMONE REPLACEMENT THERAPY
     Dosage: 10 MG, FOR 15 DAYS
     Dates: start: 19891213
  5. MEDROXYPROGESTERONE ACETATE [Suspect]
     Dosage: 10 MG, FOR 10 DAYS
     Dates: start: 19920318
  6. MEDROXYPROGESTERONE ACETATE [Suspect]
     Dosage: 2.5 MG, UNK
     Dates: start: 19920828, end: 19970402
  7. PREMARIN [Suspect]
     Indication: HORMONE REPLACEMENT THERAPY
     Dosage: 1.25 MG, UNK
     Dates: start: 19920828, end: 19970402
  8. PREMARIN [Suspect]
     Dosage: 2.5 MG, UNK
     Dates: start: 19920828, end: 19970402
  9. PREMARIN [Suspect]
     Dosage: 0.9 MG, UNK
     Dates: start: 19920828, end: 19970402
  10. PREMPRO [Suspect]
     Indication: HORMONE REPLACEMENT THERAPY
     Dates: start: 19970402, end: 20000707
  11. PROGESTERONE [Suspect]
     Indication: BLEEDING TIME PROLONGED
     Dosage: UNK
     Route: 030
     Dates: start: 19910626
  12. VITAMINS [Concomitant]
     Indication: SUPPLEMENTATION THERAPY
     Dosage: UNK
     Dates: start: 19930101

REACTIONS (1)
  - BREAST CANCER [None]
